FAERS Safety Report 7751631-2 (Version None)
Quarter: 2011Q3

REPORT INFORMATION
  Report Type: 
  Country: None (occurrence: None)
  Receive Date: 20110914
  Receipt Date: 20110908
  Transmission Date: 20111222
  Serious: Yes (Hospitalization)
  Sender: FDA-Public Use
  Company Number: KR-PFIZER INC-2011084028

PATIENT
  Age: 49 Year
  Sex: Female

DRUGS (29)
  1. SUNITINIB MALATE [Suspect]
     Indication: RENAL CELL CARCINOMA
     Dosage: 50 MG, 1X/DAY
     Route: 048
     Dates: start: 20101228
  2. FAMOTIDINE [Concomitant]
     Dosage: UNK
     Dates: start: 20110414, end: 20110414
  3. MAGNESIUM OXIDE [Concomitant]
     Dosage: UNK
     Dates: start: 20110413, end: 20110413
  4. NAPROXEN SODIUM [Concomitant]
     Dosage: UNK
     Dates: start: 20110414
  5. FAMOTIDINE [Concomitant]
     Dosage: UNK
  6. MAGNESIUM OXIDE [Concomitant]
     Dosage: UNK
     Dates: start: 20110415, end: 20110415
  7. RANITIDINE BISMUTH CITRATE [Concomitant]
     Dosage: UNK
     Dates: start: 20110414, end: 20110414
  8. BISACODYL [Concomitant]
     Dosage: UNK
     Dates: start: 20110413, end: 20110415
  9. MAGNESIUM OXIDE [Concomitant]
     Dosage: UNK
     Dates: start: 20110418, end: 20110418
  10. MAGNESIUM OXIDE [Concomitant]
     Dosage: UNK
     Dates: start: 20110412, end: 20110412
  11. NIMODIPINE [Concomitant]
     Dosage: UNK
     Dates: start: 20110414, end: 20110417
  12. FAMOTIDINE [Concomitant]
     Dosage: UNK
     Dates: start: 20110410, end: 20110413
  13. CILAZAPRIL [Concomitant]
     Dosage: UNK
     Dates: start: 20110413, end: 20110414
  14. FUSIDATE SODIUM [Concomitant]
     Dosage: UNK
     Dates: start: 20110412, end: 20110417
  15. SODIUM CHLORIDE [Concomitant]
     Dosage: UNK
     Dates: start: 20110412, end: 20110415
  16. METHYLPREDNISOLONE ACEPONATE [Concomitant]
     Dosage: UNK
     Dates: start: 20110412, end: 20110417
  17. FAMOTIDINE [Concomitant]
     Dosage: UNK
     Dates: start: 20110415, end: 20110425
  18. METHYLPREDNISOLONE ACEPONATE [Concomitant]
     Dosage: UNK
     Dates: start: 20110411, end: 20110411
  19. NIMODIPINE [Concomitant]
     Dosage: UNK
     Dates: start: 20110418, end: 20110418
  20. FAMOTIDINE [Concomitant]
     Dosage: UNK
     Dates: start: 20110409, end: 20110409
  21. FAMOTIDINE [Concomitant]
     Dosage: UNK
     Dates: start: 20110414, end: 20110414
  22. FUSIDATE SODIUM [Concomitant]
     Dosage: UNK
     Dates: start: 20110418, end: 20110418
  23. METHYLPREDNISOLONE ACEPONATE [Concomitant]
     Dosage: UNK
     Dates: start: 20110418, end: 20110418
  24. FAMOTIDINE [Concomitant]
     Dosage: UNK
     Dates: start: 20110408, end: 20110408
  25. FUSIDATE SODIUM [Concomitant]
     Dosage: UNK
     Dates: start: 20110411, end: 20110411
  26. SODIUM CHLORIDE [Concomitant]
     Dosage: UNK
     Dates: start: 20110408, end: 20110408
  27. SODIUM CHLORIDE [Concomitant]
     Dosage: UNK
     Dates: start: 20110416, end: 20110416
  28. SODIUM CHLORIDE [Concomitant]
     Dosage: UNK
     Dates: start: 20110417, end: 20110417
  29. MAGNESIUM OXIDE [Concomitant]
     Dosage: UNK
     Dates: start: 20110417, end: 20110417

REACTIONS (1)
  - SUBARACHNOID HAEMORRHAGE [None]
